FAERS Safety Report 6052829-4 (Version None)
Quarter: 2009Q1

REPORT INFORMATION
  Report Type: 
  Country: None (occurrence: None)
  Receive Date: 20090127
  Receipt Date: 20090115
  Transmission Date: 20090719
  Serious: Yes (Hospitalization)
  Sender: FDA-Public Use
  Company Number: FR-PFIZER INC-2009157016

PATIENT

DRUGS (9)
  1. AMLOR [Suspect]
     Indication: HYPERTENSION
     Dosage: 10 MG, 1X/DAY
     Route: 048
     Dates: start: 20081001
  2. ZOMETA [Suspect]
     Indication: METASTASES TO BONE
     Dosage: FREQUENCY: EVERY 4 WEEKS;
     Route: 042
     Dates: start: 20080201, end: 20080928
  3. CAPECITABINE [Suspect]
     Indication: BREAST CANCER
     Route: 048
     Dates: start: 20070401, end: 20081030
  4. LASILIX [Suspect]
     Indication: HYPERTENSION
     Dosage: 60 MG, 1X/DAY
     Route: 048
     Dates: start: 20080901
  5. TANAKAN [Concomitant]
     Indication: SENSORY LOSS
     Dosage: 40 MG, 2X/DAY
     Route: 048
     Dates: start: 19980101
  6. LIPANTHYL [Concomitant]
     Indication: DYSLIPIDAEMIA
     Dosage: 160 MG, 1X/DAY
     Route: 048
     Dates: start: 19980101, end: 20081030
  7. ACETAMINOPHEN [Concomitant]
     Indication: PAIN
     Dosage: 1000 MG, 3X/DAY
     Route: 048
     Dates: start: 19980101, end: 20081030
  8. DOMPERIDONE [Concomitant]
     Dosage: 10 MG, 3X/DAY
     Route: 048
     Dates: start: 19980101, end: 20081030
  9. OMEPRAZOLE [Concomitant]
     Dosage: 20 MG, 1X/DAY
     Route: 048
     Dates: start: 19980101

REACTIONS (1)
  - RENAL FAILURE [None]
